FAERS Safety Report 5505597-6 (Version None)
Quarter: 2007Q4

REPORT INFORMATION
  Report Type: 
  Country: None (occurrence: None)
  Receive Date: 20071102
  Receipt Date: 20071023
  Transmission Date: 20080405
  Serious: Yes (Other)
  Sender: FDA-Public Use
  Company Number: US-PFIZER INC-2007024907

PATIENT
  Sex: Female

DRUGS (8)
  1. NEURONTIN [Suspect]
     Indication: DYSKINESIA
     Dates: start: 20051201, end: 20060501
  2. PROZAC [Concomitant]
  3. ESOMEPRAZOLE [Concomitant]
  4. SLEEP AID [Concomitant]
  5. PRILOSEC [Concomitant]
  6. AMERGE [Concomitant]
  7. CALCIUM [Concomitant]
  8. MAGNESIUM SULFATE [Concomitant]

REACTIONS (5)
  - ACTIVITIES OF DAILY LIVING IMPAIRED [None]
  - BALANCE DISORDER [None]
  - FATIGUE [None]
  - MEMORY IMPAIRMENT [None]
  - VISUAL DISTURBANCE [None]
